FAERS Safety Report 10866177 (Version 4)
Quarter: 2015Q1

REPORT INFORMATION
  Report Type: Spontaneous
  Country: US (occurrence: None)
  Receive Date: 20150219
  Receipt Date: 20150318
  Transmission Date: 20150721
  Serious: Yes (Other)
  Sender: FDA-Public Use
  Company Number: ADR-2015-00342

PATIENT
  Age: 55 Year
  Sex: Female

DRUGS (4)
  1. UNKNOWN INTRATHECAL MEDICATION THAT WAS A NUMBING AGENT [Suspect]
     Active Substance: UNSPECIFIED INGREDIENT
  2. MARCAINE [Suspect]
     Active Substance: BUPIVACAINE HYDROCHLORIDE
     Dosage: 0.7494 MG/DAY }1 YEAR AGO - ONGOING
  3. BACLOFEN INTRATHECAL [Suspect]
     Active Substance: BACLOFEN
     Indication: BACK PAIN
     Dosage: 0.7494 MG/DAY } 1 YEAR AGO- ONGOING
  4. DILAUDID [Suspect]
     Active Substance: HYDROMORPHONE HYDROCHLORIDE
     Dosage: 0.7494 MG/DAY }1 YR AGO - ONGOING

REACTIONS (13)
  - Drug dose omission [None]
  - Hypoacusis [None]
  - Pain [None]
  - Malaise [None]
  - Vomiting [None]
  - Nausea [None]
  - Parosmia [None]
  - Diarrhoea [None]
  - Feeding disorder [None]
  - Drug withdrawal syndrome [None]
  - Device computer issue [None]
  - Chills [None]
  - Treatment noncompliance [None]

NARRATIVE: CASE EVENT DATE: 20141225
